FAERS Safety Report 9691727 (Version 2)
Quarter: 2013Q4

REPORT INFORMATION
  Report Type: Spontaneous
  Country: BR (occurrence: BR)
  Receive Date: 20131115
  Receipt Date: 20131115
  Transmission Date: 20140711
  Serious: Yes (Other)
  Sender: FDA-Public Use
  Company Number: BR-ABBVIE-13X-020-1142832-00

PATIENT
  Age: 61 Year
  Sex: Female
  Weight: 76 kg

DRUGS (6)
  1. DEPAKOTE ER [Suspect]
     Indication: NERVOUS SYSTEM DISORDER
     Dosage: 1000 MG: 2 TABLETS AT NIGHT
     Route: 048
     Dates: start: 201305
  2. DEPAKOTE ER [Suspect]
     Indication: ARRHYTHMIA
  3. SONEBON [Concomitant]
     Indication: NERVOUS SYSTEM DISORDER
     Dosage: 5 MG: 1 TABLET AT NIGHT
     Route: 048
     Dates: start: 201308
  4. SONEBON [Concomitant]
     Indication: ARRHYTHMIA
  5. OXCARBAZEPINE [Concomitant]
     Indication: NERVOUS SYSTEM DISORDER
     Dosage: 900 MG: 1 TABLET AND HALF, WITH DEPAKOTE ER
     Dates: start: 201305
  6. OXCARBAZEPINE [Concomitant]
     Indication: ARRHYTHMIA

REACTIONS (4)
  - Convulsion [Recovered/Resolved]
  - Convulsion [Recovered/Resolved]
  - Weight increased [Not Recovered/Not Resolved]
  - Increased appetite [Not Recovered/Not Resolved]
